FAERS Safety Report 4538615-2 (Version None)
Quarter: 2004Q4

REPORT INFORMATION
  Report Type: 
  Country: None (occurrence: None)
  Receive Date: 20041227
  Receipt Date: 20041214
  Transmission Date: 20050328
  Serious: Yes (Death, Other)
  Sender: FDA-Public Use
  Company Number: JP-JNJFOC-20040701502

PATIENT
  Sex: Female

DRUGS (4)
  1. ITRACONAZOLE [Suspect]
     Route: 049
     Dates: start: 20040514, end: 20040718
  2. ITRACONAZOLE [Suspect]
     Route: 049
     Dates: start: 20040514, end: 20040718
  3. ITRACONAZOLE [Suspect]
     Indication: ONYCHOMYCOSIS
     Route: 049
     Dates: start: 20040514, end: 20040718
  4. ASPIRIN [Concomitant]
     Indication: HEADACHE
     Route: 065

REACTIONS (2)
  - ABORTION SPONTANEOUS [None]
  - DRUG EXPOSURE DURING PREGNANCY [None]
